FAERS Safety Report 11211367 (Version 2)
Quarter: 2015Q3

REPORT INFORMATION
  Report Type: Spontaneous
  Country: JP (occurrence: JP)
  Receive Date: 20150623
  Receipt Date: 20150707
  Transmission Date: 20151125
  Serious: Yes (Hospitalization)
  Sender: FDA-Public Use
  Company Number: JP-ROCHE-1597366

PATIENT
  Age: 54 Year
  Sex: Male
  Weight: 103 kg

DRUGS (9)
  1. SAXIZON [Concomitant]
     Active Substance: HYDROCORTISONE SODIUM SUCCINATE
     Indication: PROPHYLAXIS
     Dosage: SINGLE DOSE ADMINISTRATION
     Route: 041
     Dates: start: 20150121, end: 20150508
  2. SAXIZON [Concomitant]
     Active Substance: HYDROCORTISONE SODIUM SUCCINATE
     Indication: RHEUMATOID ARTHRITIS
     Dosage: SINGLE DOSE ADMINISTRATION
     Route: 042
     Dates: start: 20140917, end: 20141224
  3. RHEUMATREX [Concomitant]
     Active Substance: METHOTREXATE SODIUM
     Route: 065
     Dates: start: 20140519, end: 20140811
  4. METHOTREXATE [Concomitant]
     Active Substance: METHOTREXATE
     Indication: RHEUMATOID ARTHRITIS
     Route: 065
     Dates: start: 201412
  5. ACTEMRA [Suspect]
     Active Substance: TOCILIZUMAB
     Indication: RHEUMATOID ARTHRITIS
     Dosage: MOST RECENT DOSE PRIOR TO THE EVENT WAS TAKEN ON 08/MAY/2015
     Route: 041
     Dates: start: 20141219, end: 20150508
  6. RHEUMATREX [Concomitant]
     Active Substance: METHOTREXATE SODIUM
     Indication: RHEUMATOID ARTHRITIS
     Route: 065
     Dates: start: 20130624, end: 20140421
  7. RHEUMATREX [Concomitant]
     Active Substance: METHOTREXATE SODIUM
     Route: 048
     Dates: start: 20140917
  8. FOLIAMIN [Concomitant]
     Active Substance: FOLIC ACID
     Indication: PROPHYLAXIS
     Route: 048
     Dates: start: 20140917, end: 20150508
  9. REBAMIPIDE [Concomitant]
     Active Substance: REBAMIPIDE
     Indication: PROPHYLAXIS
     Dosage: UNCERTAIN DOSAGE AND A DOSE
     Route: 048

REACTIONS (2)
  - Retroperitoneal haemorrhage [Not Recovered/Not Resolved]
  - Gastrointestinal stromal tumour [Not Recovered/Not Resolved]

NARRATIVE: CASE EVENT DATE: 20150531
